FAERS Safety Report 7104968-4 (Version None)
Quarter: 2010Q4

REPORT INFORMATION
  Report Type: 
  Country: None (occurrence: None)
  Receive Date: 20101116
  Receipt Date: 20101103
  Transmission Date: 20110411
  Serious: Yes (Other)
  Sender: FDA-Public Use
  Company Number: PHHY2010CA74729

PATIENT

DRUGS (1)
  1. ALISKIREN ALI+ [Suspect]
     Dosage: UNK

REACTIONS (1)
  - BREAST CANCER [None]
